FAERS Safety Report 17597661 (Version 1)
Quarter: 2020Q1

REPORT INFORMATION
  Report Type: Report from Study
  Country: CO (occurrence: CO)
  Receive Date: 20200330
  Receipt Date: 20200330
  Transmission Date: 20200409
  Serious: Yes (Other)
  Sender: FDA-Public Use
  Company Number: NVSC2019CO009478

PATIENT
  Sex: Female

DRUGS (2)
  1. TASIGNA [Suspect]
     Active Substance: NILOTINIB
     Indication: CHRONIC MYELOID LEUKAEMIA
     Dosage: 600 MG, QD
     Route: 048
     Dates: start: 20190812
  2. TASIGNA [Suspect]
     Active Substance: NILOTINIB
     Dosage: 300 MG, Q12H
     Route: 048

REACTIONS (16)
  - Depressed mood [Unknown]
  - Anxiety [Unknown]
  - Swelling face [Unknown]
  - Asthenia [Unknown]
  - Somnolence [Unknown]
  - Arthralgia [Unknown]
  - Back pain [Unknown]
  - Inappropriate schedule of product administration [Unknown]
  - Swelling [Unknown]
  - Pain in extremity [Unknown]
  - Headache [Unknown]
  - Malignant neoplasm progression [Unknown]
  - Hypertension [Unknown]
  - Malaise [Unknown]
  - Chronic myeloid leukaemia [Unknown]
  - Ear pain [Unknown]
